FAERS Safety Report 11078806 (Version 2)
Quarter: 2015Q3

REPORT INFORMATION
  Report Type: Spontaneous
  Country: US (occurrence: US)
  Receive Date: 20150430
  Receipt Date: 20150701
  Transmission Date: 20151125
  Serious: Yes (Other)
  Sender: FDA-Public Use
  Company Number: US-BAYER-2015-180981

PATIENT
  Age: 19 Year
  Sex: Female
  Weight: 60.6 kg

DRUGS (1)
  1. MIRENA [Suspect]
     Active Substance: LEVONORGESTREL
     Indication: CONTRACEPTION
     Dosage: 20 MCG/24HR, CONT
     Route: 015
     Dates: start: 2011, end: 20150429

REACTIONS (10)
  - Embedded device [Recovered/Resolved]
  - Chlamydia test positive [Not Recovered/Not Resolved]
  - Complication of device removal [None]
  - Uterine tenderness [None]
  - Device dislocation [None]
  - Device difficult to use [Recovered/Resolved]
  - Complication of device insertion [None]
  - Device breakage [Recovered/Resolved]
  - Device expulsion [Recovered/Resolved]
  - Fallopian tube cyst [None]

NARRATIVE: CASE EVENT DATE: 2013
